APPROVED DRUG PRODUCT: MEROPENEM
Active Ingredient: MEROPENEM
Strength: 500MG/VIAL
Dosage Form/Route: INJECTABLE;INJECTION
Application: A091201 | Product #001
Applicant: SANDOZ INC
Approved: Mar 29, 2011 | RLD: No | RS: No | Type: DISCN